FAERS Safety Report 4519376-X (Version None)
Quarter: 2004Q4

REPORT INFORMATION
  Report Type: 
  Country: None (occurrence: None)
  Receive Date: 20041202
  Receipt Date: 20041117
  Transmission Date: 20050328
  Serious: Yes (Other)
  Sender: FDA-Public Use
  Company Number: 2004VX000911

PATIENT
  Age: 50 Year
  Sex: Female

DRUGS (2)
  1. FLUOROURACIL [Suspect]
     Indication: GASTRIC CANCER
     Dosage: 600 MG; INTRAVENOUS
     Route: 042
     Dates: start: 20040801, end: 20041101
  2. METHOTREXATE [Suspect]
     Indication: GASTRIC CANCER
     Dosage: 100 MG; INTRAVENOUS
     Route: 042
     Dates: start: 20040801, end: 20041101

REACTIONS (5)
  - ALVEOLITIS ALLERGIC [None]
  - BONE MARROW DEPRESSION [None]
  - LIVER DISORDER [None]
  - NEOPLASM PROGRESSION [None]
  - PNEUMONIA [None]
